FAERS Safety Report 17892048 (Version 1)
Quarter: 2020Q2

REPORT INFORMATION
  Report Type: Spontaneous
  Country: US (occurrence: US)
  Receive Date: 20200612
  Receipt Date: 20200612
  Transmission Date: 20200714
  Serious: No
  Sender: FDA-Public Use
  Company Number: US-BAUSCH-BL-2020-016463

PATIENT
  Age: 67 Year
  Sex: Female

DRUGS (3)
  1. XIFAXAN [Suspect]
     Active Substance: RIFAXIMIN
     Indication: BACTERIAL INFECTION
     Dosage: STARTED 3 TO 4 YEARS PRIOR TO THE REPORT
     Route: 048
  2. XIFAXAN [Suspect]
     Active Substance: RIFAXIMIN
     Indication: PRODUCT USE IN UNAPPROVED INDICATION
  3. OMEPRAZOLE. [Concomitant]
     Active Substance: OMEPRAZOLE
     Indication: BACTERIAL INFECTION

REACTIONS (4)
  - Gastrointestinal bacterial overgrowth [Not Recovered/Not Resolved]
  - Drug effective for unapproved indication [Unknown]
  - Symptom recurrence [Not Recovered/Not Resolved]
  - Product use in unapproved indication [Unknown]
